FAERS Safety Report 24806286 (Version 1)
Quarter: 2025Q1

REPORT INFORMATION
  Report Type: Spontaneous
  Country: US (occurrence: US)
  Receive Date: 20250103
  Receipt Date: 20250103
  Transmission Date: 20250409
  Serious: No
  Sender: PURDUE
  Company Number: US-PURDUE-USA-2024-0314423

PATIENT

DRUGS (1)
  1. ACETAMINOPHEN\OXYCODONE HYDROCHLORIDE [Suspect]
     Active Substance: ACETAMINOPHEN\OXYCODONE HYDROCHLORIDE
     Indication: Pain management
     Route: 048

REACTIONS (7)
  - Vomiting [Unknown]
  - Vision blurred [Unknown]
  - Pyrexia [Unknown]
  - Dizziness [Unknown]
  - Headache [Unknown]
  - Nausea [Unknown]
  - Product substitution issue [Unknown]
